FAERS Safety Report 21459212 (Version 1)
Quarter: 2022Q4

REPORT INFORMATION
  Report Type: Spontaneous
  Country: US (occurrence: None)
  Receive Date: 20221013
  Receipt Date: 20221013
  Transmission Date: 20230113
  Serious: Yes (Hospitalization)
  Sender: FDA-Public Use
  Company Number: None

PATIENT
  Sex: Female
  Weight: 44.0 kg

DRUGS (4)
  1. FULVESTRANT [Suspect]
     Active Substance: FULVESTRANT
     Indication: Breast cancer
     Dosage: FREQUENCY : MONTHLY;?
     Route: 030
  2. ZOFRAN [Concomitant]
  3. PROMETHAZINE [Concomitant]
  4. HYDROCODONE-ACETAMINOPHEN [Concomitant]

REACTIONS (1)
  - Hospitalisation [None]
